FAERS Safety Report 24848791 (Version 1)
Quarter: 2025Q1

REPORT INFORMATION
  Report Type: Spontaneous
  Country: FR (occurrence: FR)
  Receive Date: 20250116
  Receipt Date: 20250116
  Transmission Date: 20250408
  Serious: Yes (Death, Other)
  Sender: MERCK
  Company Number: None

PATIENT
  Age: 58 Year
  Sex: Male
  Weight: 58 kg

DRUGS (2)
  1. SIVEXTRO [Suspect]
     Active Substance: TEDIZOLID PHOSPHATE
     Indication: Brain empyema
     Route: 042
     Dates: start: 20240908, end: 20241112
  2. MEROPENEM [Suspect]
     Active Substance: MEROPENEM
     Indication: Brain empyema
     Route: 042
     Dates: start: 20240908, end: 20241021

REACTIONS (1)
  - Metabolic encephalopathy [Fatal]

NARRATIVE: CASE EVENT DATE: 20241018
